FAERS Safety Report 5370585-X (Version None)
Quarter: 2007Q2

REPORT INFORMATION
  Report Type: 
  Country: None (occurrence: None)
  Receive Date: 20070626
  Receipt Date: 20070615
  Transmission Date: 20071010
  Serious: Yes (Other)
  Sender: FDA-Public Use
  Company Number: JP-MERCK-0706USA03921

PATIENT
  Age: 70 Year
  Sex: Female

DRUGS (2)
  1. NOROXIN [Suspect]
     Route: 048
     Dates: start: 20061101
  2. [THERAPY UNSPECIFIED] [Suspect]
     Route: 065
     Dates: start: 20061101

REACTIONS (1)
  - DRUG ERUPTION [None]
